FAERS Safety Report 5585954-2 (Version None)
Quarter: 2007Q4

REPORT INFORMATION
  Report Type: 
  Country: None (occurrence: None)
  Receive Date: 20071205
  Receipt Date: 20070209
  Transmission Date: 20080405
  Serious: Yes (Hospitalization, Other)
  Sender: FDA-Public Use
  Company Number: HQWYE404312FEB07

PATIENT
  Age: 55 Year
  Sex: Male
  Weight: 90.8 kg

DRUGS (2)
  1. EFFEXOR XR [Suspect]
     Indication: ANXIETY
     Dosage: 300 MG 1X PER 1 DAY, ORAL
     Route: 048
     Dates: start: 20061201, end: 20070119
  2. LOVASTATIN [Concomitant]

REACTIONS (3)
  - AGRANULOCYTOSIS [None]
  - HEADACHE [None]
  - LIVER TENDERNESS [None]
